FAERS Safety Report 4463720-9 (Version None)
Quarter: 2004Q3

REPORT INFORMATION
  Report Type: 
  Country: None (occurrence: None)
  Receive Date: 20040929
  Receipt Date: 20040922
  Transmission Date: 20050211
  Serious: Yes (Hospitalization)
  Sender: FDA-Public Use
  Company Number: 2004CG01890

PATIENT
  Age: 92 Year
  Sex: Female
  Weight: 76 kg

DRUGS (7)
  1. MOPRAL [Suspect]
     Dosage: 20 MG QD PO
     Route: 048
     Dates: end: 20040603
  2. COVERSYL [Suspect]
     Indication: ESSENTIAL HYPERTENSION
     Dosage: 2 MG QD PO
     Route: 048
     Dates: end: 20040603
  3. TRANSIPEG [Suspect]
     Dosage: 2.95 GR BID PO
     Route: 048
     Dates: end: 20040619
  4. IKOREL [Suspect]
     Dosage: 20 MG BID PO
     Route: 048
     Dates: end: 20040630
  5. SIMVASTATIN [Suspect]
     Dosage: 20 MG QD PO
     Route: 048
     Dates: end: 20040603
  6. IMOVANE [Concomitant]
  7. MIXTARD HUMAN 70/30 [Concomitant]

REACTIONS (2)
  - HYPERKALAEMIA [None]
  - HYPONATRAEMIA [None]
